FAERS Safety Report 18416997 (Version 1)
Quarter: 2020Q4

REPORT INFORMATION
  Report Type: Report from Study
  Country: FR (occurrence: FR)
  Receive Date: 20201022
  Receipt Date: 20201022
  Transmission Date: 20210114
  Serious: Yes (Hospitalization)
  Sender: FDA-Public Use
  Company Number: FR-TEVA-2020-FR-1839570

PATIENT
  Age: 50 Year
  Sex: Female

DRUGS (1)
  1. ADRIAMYCIN [Suspect]
     Active Substance: DOXORUBICIN HYDROCHLORIDE
     Indication: LYMPHOMA
     Dosage: VIA TOTALLY IMPLANTABLE CENTRAL VENOUS ACCESS DEVICE
     Route: 042

REACTIONS (6)
  - Infusion site extravasation [Unknown]
  - Necrosis [Unknown]
  - Tissue injury [Unknown]
  - Infusion site cellulitis [Unknown]
  - Administration site extravasation [Unknown]
  - Infusion site pain [Unknown]
